FAERS Safety Report 17442331 (Version 2)
Quarter: 2020Q1

REPORT INFORMATION
  Report Type: Spontaneous
  Country: US (occurrence: US)
  Receive Date: 20200220
  Receipt Date: 20200302
  Transmission Date: 20200409
  Serious: No
  Sender: FDA-Public Use
  Company Number: US-009507513-2002USA007688

PATIENT
  Sex: Female

DRUGS (6)
  1. COZAAR [Suspect]
     Active Substance: LOSARTAN POTASSIUM
     Dosage: 1 DAILY
     Dates: start: 20200217
  2. COUMADIN [Concomitant]
     Active Substance: WARFARIN SODIUM
  3. NEXIUM [Concomitant]
     Active Substance: ESOMEPRAZOLE MAGNESIUM
  4. TOPROL XL [Concomitant]
     Active Substance: METOPROLOL SUCCINATE
  5. COZAAR [Suspect]
     Active Substance: LOSARTAN POTASSIUM
     Indication: HYPERTENSION
     Dosage: 1 DAILY
  6. AMLODIPINE [Concomitant]
     Active Substance: AMLODIPINE BESYLATE

REACTIONS (1)
  - Drug ineffective [Unknown]
